FAERS Safety Report 7233160-8 (Version None)
Quarter: 2011Q1

REPORT INFORMATION
  Report Type: 
  Country: None (occurrence: None)
  Receive Date: 20110119
  Receipt Date: 20110112
  Transmission Date: 20110831
  Serious: Yes (Hospitalization, Other)
  Sender: FDA-Public Use
  Company Number: JP-EISAI INC-E2090-01399-SOL-JP

PATIENT
  Sex: Female

DRUGS (1)
  1. TRERIEF [Suspect]
     Indication: PARKINSON'S DISEASE
     Route: 048

REACTIONS (3)
  - CACHEXIA [None]
  - MALNUTRITION [None]
  - ANAEMIA [None]
